FAERS Safety Report 8548823-1 (Version None)
Quarter: 2012Q3

REPORT INFORMATION
  Report Type: 
  Country: None (occurrence: None)
  Receive Date: 20120730
  Receipt Date: 20120725
  Transmission Date: 20120928
  Serious: Yes (Other)
  Sender: FDA-Public Use
  Company Number: PHHY2012IT064819

PATIENT
  Sex: Male

DRUGS (2)
  1. VOLTAREN [Suspect]
     Indication: BACK PAIN
     Dosage: 75 MG/3 ML
     Route: 030
     Dates: start: 20120710, end: 20120716
  2. MUSCORIL [Suspect]
     Indication: BACK PAIN
     Dosage: 4 MG/2 ML
     Route: 030
     Dates: start: 20120710, end: 20120716

REACTIONS (6)
  - DYSPNOEA [None]
  - PRURITUS [None]
  - BLOOD PRESSURE SYSTOLIC INCREASED [None]
  - DYSPEPSIA [None]
  - ERUCTATION [None]
  - FEELING HOT [None]
